FAERS Safety Report 7072449-2 (Version None)
Quarter: 2010Q4

REPORT INFORMATION
  Report Type: 
  Country: None (occurrence: None)
  Receive Date: 20101029
  Receipt Date: 20100128
  Transmission Date: 20110411
  Serious: Yes (Hospitalization)
  Sender: FDA-Public Use
  Company Number: A0841885A

PATIENT
  Age: 71 Year
  Sex: Female

DRUGS (4)
  1. ADVAIR DISKUS 100/50 [Suspect]
     Indication: ASTHMA
     Dosage: 1PUFF TWICE PER DAY
     Route: 055
     Dates: start: 20100114, end: 20100115
  2. ALBUTEROL [Concomitant]
  3. BENICAR [Concomitant]
  4. CARDIZEM [Concomitant]

REACTIONS (1)
  - ASTHMA [None]
